FAERS Safety Report 15608673 (Version 2)
Quarter: 2018Q4

REPORT INFORMATION
  Report Type: Spontaneous
  Country: US (occurrence: US)
  Receive Date: 20181112
  Receipt Date: 20181205
  Transmission Date: 20190205
  Serious: No
  Sender: FDA-Public Use
  Company Number: US-SA-2018SA305149

PATIENT
  Sex: Female

DRUGS (2)
  1. PRALUENT [Suspect]
     Active Substance: ALIROCUMAB
     Indication: HYPERLIPIDAEMIA
     Dosage: 75 MG, QOW
     Route: 058
  2. REPATHA [Concomitant]
     Active Substance: EVOLOCUMAB

REACTIONS (12)
  - Dizziness [Unknown]
  - Arthralgia [Unknown]
  - Feeling abnormal [Unknown]
  - Headache [Unknown]
  - Influenza like illness [Unknown]
  - Abdominal pain [Unknown]
  - Injection site pain [Unknown]
  - Pain [Unknown]
  - Myalgia [Unknown]
  - Condition aggravated [Unknown]
  - Malaise [Unknown]
  - Insomnia [Unknown]
